FAERS Safety Report 4826320-4 (Version None)
Quarter: 2005Q4

REPORT INFORMATION
  Report Type: 
  Country: None (occurrence: None)
  Receive Date: 20051111
  Receipt Date: 20051031
  Transmission Date: 20060501
  Serious: Yes (Life-Threatening)
  Sender: FDA-Public Use
  Company Number: GB-ROCHE-423363

PATIENT
  Age: 20 Year
  Sex: Male

DRUGS (4)
  1. ROACCUTANE [Suspect]
     Indication: ACNE
     Route: 048
     Dates: start: 20040727, end: 20040901
  2. ROACCUTANE [Suspect]
     Route: 048
     Dates: start: 20040902, end: 20050405
  3. ROACCUTANE [Suspect]
     Route: 048
     Dates: start: 20050406, end: 20050511
  4. ROACCUTANE [Suspect]
     Route: 048
     Dates: start: 20050512, end: 20050611

REACTIONS (2)
  - OVERDOSE [None]
  - SUICIDE ATTEMPT [None]
